FAERS Safety Report 5766207-6 (Version None)
Quarter: 2008Q2

REPORT INFORMATION
  Report Type: 
  Country: None (occurrence: None)
  Receive Date: 20080605
  Receipt Date: 20080519
  Transmission Date: 20081010
  Serious: Yes (Death)
  Sender: FDA-Public Use
  Company Number: 2008001164

PATIENT
  Age: 70 Year
  Sex: Male

DRUGS (1)
  1. TARCEVA [Suspect]
     Indication: NON-SMALL CELL LUNG CANCER
     Dosage: (150 MG, QD), ORAL
     Route: 048
     Dates: start: 20080101, end: 20080401

REACTIONS (3)
  - CARDIAC FAILURE [None]
  - MELAENA [None]
  - RESPIRATORY FAILURE [None]
